FAERS Safety Report 12457404 (Version 1)
Quarter: 2016Q2

REPORT INFORMATION
  Report Type: Other
  Country: GB (occurrence: GB)
  Receive Date: 20160610
  Receipt Date: 20160610
  Transmission Date: 20160815
  Serious: Yes (Disabling)
  Sender: FDA-Public Use
  Company Number: GB-MYLANLABS-2016M1023629

PATIENT

DRUGS (17)
  1. BENDROFLUMETHIAZIDE [Concomitant]
     Active Substance: BENDROFLUMETHIAZIDE
     Dosage: 2.5 MG, QD (MORNING)
  2. ASPIRIN                            /00002701/ [Concomitant]
     Active Substance: ASPIRIN
     Dosage: 75 MG, QD
  3. PRAVASTATIN [Concomitant]
     Active Substance: PRAVASTATIN\PRAVASTATIN SODIUM
     Dosage: 20 MG, QD (AT NIGHT)
  4. NOVORAPID [Concomitant]
     Active Substance: INSULIN ASPART
     Dosage: UNK (AS DIRECTED 100UNITS/ML 10ML)
  5. NICORANDIL [Concomitant]
     Active Substance: NICORANDIL
     Dosage: 10 MG, BID
  6. ATORVASTATIN [Suspect]
     Active Substance: ATORVASTATIN
     Indication: CARDIAC DISORDER
     Dosage: 1 DF, QD (AT NIGHT)
     Route: 048
     Dates: start: 20160411, end: 20160509
  7. AMLODIPINE [Concomitant]
     Active Substance: AMLODIPINE BESYLATE
     Dosage: 10 MG, QD
  8. PANCREATIN [Concomitant]
     Active Substance: PANCRELIPASE
     Dosage: AS DIRECTED
  9. RIFAXIMIN [Concomitant]
     Active Substance: RIFAXIMIN
     Dosage: FOR 10 DAYS EVERY 6 WEEKS
  10. LANSOPRAZOLE. [Concomitant]
     Active Substance: LANSOPRAZOLE
     Dosage: 2 DF, QD
  11. LOSARTAN. [Concomitant]
     Active Substance: LOSARTAN
     Dosage: 50 MG, QD
  12. LOPERAMIDE [Concomitant]
     Active Substance: LOPERAMIDE
     Dosage: 2 MG, UNK
  13. CIPROFLOXACIN. [Concomitant]
     Active Substance: CIPROFLOXACIN
     Dosage: 500 MG, BID
  14. CLOPIDOGREL [Concomitant]
     Active Substance: CLOPIDOGREL BISULFATE
     Dosage: 75 MG, QD
  15. MONOMIL [Concomitant]
     Dosage: 120 MG, QD (MORNING)
  16. SALBUTAMOL [Concomitant]
     Active Substance: ALBUTEROL
     Dosage: 200 ?G, UNK
     Route: 055
  17. GLUCOSE [Concomitant]
     Active Substance: DEXTROSE
     Dosage: 75 G, UNK (AS DIRECTED)
     Route: 048

REACTIONS (4)
  - Blood pressure decreased [Recovered/Resolved]
  - Blood glucose increased [Recovered/Resolved]
  - Back pain [Recovered/Resolved]
  - Headache [Recovered/Resolved]

NARRATIVE: CASE EVENT DATE: 20160414
